FAERS Safety Report 9297162 (Version 4)
Quarter: 2013Q3

REPORT INFORMATION
  Report Type: Spontaneous
  Country: US (occurrence: US)
  Receive Date: 20130520
  Receipt Date: 20130807
  Transmission Date: 20140515
  Serious: Yes (Hospitalization, Other)
  Sender: FDA-Public Use
  Company Number: US-ROCHE-791961

PATIENT
  Age: 20 Year
  Sex: Male

DRUGS (10)
  1. ACCUTANE [Suspect]
     Indication: ACNE
     Route: 048
     Dates: start: 200103, end: 200110
  2. ACCUTANE [Suspect]
     Route: 048
     Dates: start: 20020723, end: 20021106
  3. ACCUTANE [Suspect]
     Route: 048
  4. ACCUTANE [Suspect]
     Route: 048
     Dates: start: 20030501, end: 20040103
  5. ACCUTANE [Suspect]
     Route: 048
     Dates: start: 20050112, end: 200507
  6. ACCUTANE [Suspect]
     Route: 048
  7. CLARAVIS [Suspect]
     Indication: ACNE CYSTIC
     Route: 065
     Dates: start: 200906, end: 200909
  8. AMNESTEEM [Suspect]
     Indication: ACNE CYSTIC
     Route: 065
     Dates: start: 200305, end: 200311
  9. PREDNISONE [Concomitant]
  10. CEPHALEXIN [Concomitant]
     Route: 065
     Dates: start: 200111

REACTIONS (13)
  - Colitis ulcerative [Unknown]
  - Clostridium difficile colitis [Unknown]
  - Inflammatory bowel disease [Unknown]
  - Crohn^s disease [Unknown]
  - Deep vein thrombosis [Unknown]
  - Depression [Unknown]
  - Arthralgia [Unknown]
  - Aspartate aminotransferase increased [Unknown]
  - Acne [Unknown]
  - Dry skin [Unknown]
  - Lip dry [Unknown]
  - Epistaxis [Unknown]
  - Blood triglycerides increased [Unknown]
